FAERS Safety Report 6535796-6 (Version None)
Quarter: 2010Q1

REPORT INFORMATION
  Report Type: 
  Country: None (occurrence: None)
  Receive Date: 20100106
  Receipt Date: 20091223
  Transmission Date: 20100710
  Serious: Yes (Hospitalization, Other)
  Sender: FDA-Public Use
  Company Number: WAES 98100764

PATIENT
  Age: 45 Year
  Sex: Male

DRUGS (1)
  1. PEPCID AC [Suspect]
     Indication: DUODENAL ULCER
     Dosage: 40 MG/DAILY PO
     Route: 048

REACTIONS (7)
  - DISEASE RECURRENCE [None]
  - DUODENAL ULCER [None]
  - GASTRITIS HAEMORRHAGIC [None]
  - HAEMATOCRIT DECREASED [None]
  - HAEMOGLOBIN DECREASED [None]
  - HEPATITIS [None]
  - WEIGHT DECREASED [None]
